FAERS Safety Report 18873947 (Version 12)
Quarter: 2021Q2

REPORT INFORMATION
  Report Type: Spontaneous
  Country: US (occurrence: US)
  Receive Date: 20210210
  Receipt Date: 20210520
  Transmission Date: 20210717
  Serious: Yes (Hospitalization, Other)
  Sender: FDA-Public Use
  Company Number: US-CELGENEUS-USA-20210202028

PATIENT
  Age: 71 Year
  Sex: Male
  Weight: 81.72 kg

DRUGS (28)
  1. AZACITIDINE. [Suspect]
     Active Substance: AZACITIDINE
     Indication: ACUTE MYELOID LEUKAEMIA
     Dosage: 75 MILLIGRAM/SQ. METER
     Route: 041
     Dates: start: 20210107, end: 20210113
  2. VENETOCLAX. [Suspect]
     Active Substance: VENETOCLAX
     Dosage: 100 MILLIGRAM
     Route: 048
     Dates: start: 20210108, end: 20210108
  3. VENETOCLAX. [Suspect]
     Active Substance: VENETOCLAX
     Dosage: 100 MILLIGRAM
     Route: 048
     Dates: start: 20210110, end: 20210210
  4. VENETOCLAX. [Suspect]
     Active Substance: VENETOCLAX
     Dosage: 200 MILLIGRAM
     Route: 048
     Dates: start: 20210111, end: 20210208
  5. FINASTERIDE. [Concomitant]
     Active Substance: FINASTERIDE
     Indication: BENIGN PROSTATIC HYPERPLASIA
     Dosage: 5 MILLIGRAM
     Route: 048
     Dates: start: 20120309
  6. CEFEPIME [Concomitant]
     Active Substance: CEFEPIME HYDROCHLORIDE
     Indication: PYREXIA
     Route: 065
  7. DIFLUCAN [Concomitant]
     Active Substance: FLUCONAZOLE
     Indication: ANTIFUNGAL TREATMENT
     Dosage: 400 MILLIGRAM
     Route: 048
     Dates: start: 20201231
  8. DIFLUCAN [Concomitant]
     Active Substance: FLUCONAZOLE
     Indication: PREMEDICATION
  9. BISACODYL. [Concomitant]
     Active Substance: BISACODYL
     Indication: CONSTIPATION
     Dosage: 5 MILLIGRAM
     Route: 048
     Dates: start: 20210122
  10. ZOSYN [Concomitant]
     Active Substance: PIPERACILLIN SODIUM\TAZOBACTAM SODIUM
     Indication: PRODUCT USED FOR UNKNOWN INDICATION
     Route: 065
  11. METOPROLOL. [Concomitant]
     Active Substance: METOPROLOL
     Indication: HYPERTENSION
     Dosage: 50 MILLIGRAM
     Route: 048
     Dates: start: 20150504
  12. OMEPRAZOLE. [Concomitant]
     Active Substance: OMEPRAZOLE
     Indication: GASTROOESOPHAGEAL REFLUX DISEASE
     Dosage: 20 MILLIGRAM
     Route: 048
     Dates: start: 20120331
  13. ULTRAM [Concomitant]
     Active Substance: TRAMADOL HYDROCHLORIDE
     Indication: PAIN
     Dosage: 200 MILLIGRAM
     Route: 048
     Dates: start: 20210122
  14. LEVAQUIN [Concomitant]
     Active Substance: LEVOFLOXACIN
     Indication: ANTIBIOTIC THERAPY
     Dosage: 500 MILLIGRAM
     Route: 048
     Dates: start: 20201227, end: 20210201
  15. VANCOMYCIN [Concomitant]
     Active Substance: VANCOMYCIN
     Indication: PRODUCT USED FOR UNKNOWN INDICATION
     Route: 065
  16. PANTOPRAZOLE [Concomitant]
     Active Substance: PANTOPRAZOLE
     Indication: GASTROINTESTINAL HAEMORRHAGE
     Dosage: 40 MILLIGRAM
     Route: 048
     Dates: start: 20210129, end: 20210201
  17. ZOFRAN [Concomitant]
     Active Substance: ONDANSETRON HYDROCHLORIDE
     Indication: VOMITING
  18. ZOVIRAX [Concomitant]
     Active Substance: ACYCLOVIR
     Indication: ANTI-INFECTIVE THERAPY
     Dosage: 400 MILLIGRAM
     Route: 048
     Dates: start: 20201229
  19. MIRABEGRON [Concomitant]
     Active Substance: MIRABEGRON
     Indication: BENIGN PROSTATIC HYPERPLASIA
     Dosage: 50 MILLIGRAM
     Route: 048
     Dates: start: 20190306
  20. POTASSIUM CHLORIDE. [Concomitant]
     Active Substance: POTASSIUM CHLORIDE
     Indication: HYPOKALAEMIA
     Dosage: 20 MILLIGRAM
     Route: 048
     Dates: start: 20210201
  21. PHENERGAN [Concomitant]
     Active Substance: PROMETHAZINE HYDROCHLORIDE
     Indication: NAUSEA
     Route: 048
     Dates: start: 20210104
  22. LEVAQUIN [Concomitant]
     Active Substance: LEVOFLOXACIN
     Indication: PREMEDICATION
     Dosage: 500 MILLIGRAM
     Route: 048
     Dates: start: 20210205
  23. VENETOCLAX. [Suspect]
     Active Substance: VENETOCLAX
     Indication: ACUTE MYELOID LEUKAEMIA
     Dosage: 50 MILLIGRAM
     Route: 048
     Dates: start: 20210107, end: 20210107
  24. TAMSULOSIN [Concomitant]
     Active Substance: TAMSULOSIN
     Indication: BENIGN PROSTATIC HYPERPLASIA
     Dosage: .4 MILLIGRAM
     Route: 048
     Dates: start: 20150619
  25. AUGMENTIN [Concomitant]
     Active Substance: AMOXICILLIN\CLAVULANATE POTASSIUM
     Indication: PNEUMONIA
     Dosage: 875/125 MG
     Route: 048
     Dates: start: 20210128, end: 20210205
  26. PHENERGAN [Concomitant]
     Active Substance: PROMETHAZINE HYDROCHLORIDE
     Indication: VOMITING
  27. ZOFRAN [Concomitant]
     Active Substance: ONDANSETRON HYDROCHLORIDE
     Indication: NAUSEA
     Dosage: 24 MILLIGRAM
     Route: 048
     Dates: start: 20210104, end: 20210128
  28. ROCEPHINE [Concomitant]
     Active Substance: CEFTRIAXONE SODIUM
     Indication: PRODUCT USED FOR UNKNOWN INDICATION
     Route: 065

REACTIONS (4)
  - Pancytopenia [Not Recovered/Not Resolved]
  - Dizziness [Recovered/Resolved]
  - Escherichia bacteraemia [Not Recovered/Not Resolved]
  - Asthenia [Recovered/Resolved]

NARRATIVE: CASE EVENT DATE: 20210128
